FAERS Safety Report 17565845 (Version 1)
Quarter: 2020Q1

REPORT INFORMATION
  Report Type: Spontaneous
  Country: US (occurrence: US)
  Receive Date: 20200306
  Receipt Date: 20200306
  Transmission Date: 20200409
  Serious: Yes (Death)
  Sender: FDA-Public Use
  Company Number: None

PATIENT
  Age: 58 Year
  Sex: Male
  Weight: 119.7 kg

DRUGS (1)
  1. AMIODARONE [Suspect]
     Active Substance: AMIODARONE
     Indication: ATRIAL FIBRILLATION
     Route: 041
     Dates: start: 20200305, end: 20200306

REACTIONS (2)
  - Cardiopulmonary failure [None]
  - Hepatic failure [None]

NARRATIVE: CASE EVENT DATE: 20200306
